FAERS Safety Report 5032687-7 (Version None)
Quarter: 2006Q2

REPORT INFORMATION
  Report Type: 
  Country: None (occurrence: None)
  Receive Date: 20060515
  Receipt Date: 20060131
  Transmission Date: 20061013
  Serious: No
  Sender: FDA-Public Use
  Company Number: S06-USA-00370-01

PATIENT
  Age: 58 Year
  Sex: Female

DRUGS (12)
  1. NAMENDA [Suspect]
     Indication: AMNESIA
     Dosage: 15 MG QD PO
     Route: 048
     Dates: start: 20060129
  2. NAMENDA [Suspect]
     Indication: AMNESIA
     Dosage: 5 MG QD PO
     Route: 048
     Dates: start: 20060115, end: 20060121
  3. NAMENDA [Suspect]
     Indication: AMNESIA
     Dosage: 5 MG BID PO
     Route: 048
     Dates: start: 20060122, end: 20060128
  4. CLONAZEPAM [Concomitant]
  5. SALSALATE [Concomitant]
  6. PROZAC [Concomitant]
  7. FUROSEMIDE [Concomitant]
  8. HYOSCYAMINE [Concomitant]
  9. ALLEGRA [Concomitant]
  10. ACTONEL [Concomitant]
  11. ZETIA [Concomitant]
  12. MULTI-VITAMIN [Concomitant]

REACTIONS (4)
  - ANXIETY [None]
  - CHEST PAIN [None]
  - HYPOAESTHESIA FACIAL [None]
  - HYPOAESTHESIA ORAL [None]
